FAERS Safety Report 9131836 (Version 1)
Quarter: 2013Q1

REPORT INFORMATION
  Report Type: Report from Study
  Country: US (occurrence: US)
  Receive Date: 20130301
  Receipt Date: 20130301
  Transmission Date: 20140127
  Serious: No
  Sender: FDA-Public Use
  Company Number: US-MYLANLABS-2012S1016781

PATIENT
  Age: 35 Year
  Sex: Female
  Weight: 83.01 kg

DRUGS (8)
  1. AMNESTEEM CAPSULES [Suspect]
     Indication: ACNE CYSTIC
     Route: 048
     Dates: start: 20120409, end: 20120806
  2. MULTIVITAMIN [Concomitant]
  3. FISH OIL [Concomitant]
  4. VITAMIN D [Concomitant]
  5. CALCIUM [Concomitant]
  6. ZYRTEC [Concomitant]
  7. DEPO PROVERA [Concomitant]
     Route: 030
  8. CITALOPRAM [Concomitant]

REACTIONS (7)
  - Joint stiffness [Not Recovered/Not Resolved]
  - Asthenia [Not Recovered/Not Resolved]
  - Fatigue [Not Recovered/Not Resolved]
  - Weight increased [Not Recovered/Not Resolved]
  - Headache [Not Recovered/Not Resolved]
  - Lip dry [Not Recovered/Not Resolved]
  - Arthralgia [Not Recovered/Not Resolved]
